FAERS Safety Report 17313184 (Version 1)
Quarter: 2020Q1

REPORT INFORMATION
  Report Type: Report from Study
  Country: None (occurrence: AU)
  Receive Date: 20200124
  Receipt Date: 20200124
  Transmission Date: 20200409
  Serious: Yes (Death, Hospitalization)
  Sender: FDA-Public Use
  Company Number: AU-ABBVIE-20K-008-3235921-00

PATIENT
  Age: 73 Year
  Sex: Male

DRUGS (1)
  1. DUODOPA [Suspect]
     Active Substance: CARBIDOPA\LEVODOPA
     Indication: PARKINSON^S DISEASE
     Dosage: 100ML GEL CASSETTE?FREQUENCY TEXT 16 HOURS?20 MG/ML 5 MG/ML
     Route: 050
     Dates: start: 20190107

REACTIONS (6)
  - Incorrect route of product administration [Unknown]
  - Malaise [Fatal]
  - Post procedural complication [Fatal]
  - Device dislocation [Unknown]
  - Abdominal pain [Fatal]
  - Embedded device [Unknown]

NARRATIVE: CASE EVENT DATE: 2020
